FAERS Safety Report 6895070-5 (Version None)
Quarter: 2010Q3

REPORT INFORMATION
  Report Type: 
  Country: None (occurrence: None)
  Receive Date: 20100727
  Receipt Date: 20100715
  Transmission Date: 20110219
  Serious: Yes (Congenital Anomaly, Other)
  Sender: FDA-Public Use
  Company Number: TPH-00226

PATIENT
  Age: 3 Year
  Sex: Female

DRUGS (1)
  1. TRIQUILAR [Suspect]
     Indication: CONTRACEPTION
     Dosage: TRANSPLACENTAL
     Route: 064

REACTIONS (5)
  - CAESAREAN SECTION [None]
  - CONGENITAL EYE DISORDER [None]
  - FOOT DEFORMITY [None]
  - LIMB ASYMMETRY [None]
  - MATERNAL DRUGS AFFECTING FOETUS [None]
